FAERS Safety Report 23489173 (Version 1)
Quarter: 2024Q1

REPORT INFORMATION
  Report Type: Spontaneous
  Country: IT (occurrence: IT)
  Receive Date: 20240206
  Receipt Date: 20240206
  Transmission Date: 20240410
  Serious: No
  Sender: FDA-Public Use
  Company Number: IT-MINISAL02-948443

PATIENT
  Age: 54 Year
  Sex: Male

DRUGS (9)
  1. CABOMETYX [Suspect]
     Active Substance: CABOZANTINIB S-MALATE
     Indication: Renal cancer
     Dosage: CABOMETYX* 30CPR RIV 20MG ; ATC: L01EX07; POSOLOGICAL SCHEME: 1 TABLET PER DAY AT
     Route: 048
     Dates: start: 20230613
  2. CABOMETYX [Suspect]
     Active Substance: CABOZANTINIB S-MALATE
     Indication: Metastasis
  3. KEYTRUDA [Suspect]
     Active Substance: PEMBROLIZUMAB
     Indication: Metastasis
     Dosage: 4TH CYCLE/ 1ST DAY WITH KEYTRUDA* 4ML 25MG /ML (EACH FL CONTAINS 100MG ); DOSE ADMINISTERED: 200 MG
     Dates: start: 20230613
  4. KEYTRUDA [Suspect]
     Active Substance: PEMBROLIZUMAB
     Indication: Renal cancer
  5. LYRICA [Concomitant]
     Active Substance: PREGABALIN
     Indication: Cancer pain
     Dosage: LYRICA*56CPS 75MG - 2 TABLET IN THE EVENING
     Route: 048
     Dates: start: 2023
  6. ACETAMINOPHEN\OXYCODONE HYDROCHLORIDE [Concomitant]
     Active Substance: ACETAMINOPHEN\OXYCODONE HYDROCHLORIDE
     Indication: Cancer pain
     Dosage: DEPALGOS 28CPR RIV 20MG +325MG - 1 TABLET EVERY 8 HOURS (7-15-23)
     Route: 048
     Dates: start: 2023
  7. MEDROL [Concomitant]
     Active Substance: METHYLPREDNISOLONE
     Indication: Steroid therapy
     Dosage: MEDROL *30CPR 4MG - 1 TAB IN THE MORNING
     Route: 048
     Dates: start: 2023
  8. MEDROL [Concomitant]
     Active Substance: METHYLPREDNISOLONE
     Indication: Metastasis
  9. MEDROL [Concomitant]
     Active Substance: METHYLPREDNISOLONE
     Indication: Renal cancer

REACTIONS (5)
  - Oral herpes [Recovering/Resolving]
  - Anaemia [Not Recovered/Not Resolved]
  - Pain [Recovering/Resolving]
  - Hypertransaminasaemia [Not Recovered/Not Resolved]
  - Erythema [Recovering/Resolving]

NARRATIVE: CASE EVENT DATE: 20230906
